FAERS Safety Report 5228956-8 (Version None)
Quarter: 2007Q1

REPORT INFORMATION
  Report Type: 
  Country: None (occurrence: None)
  Receive Date: 20061201
  Receipt Date: 20061005
  Transmission Date: 20070707
  Serious: No
  Sender: FDA-Public Use
  Company Number: US200610001231

PATIENT
  Sex: Female

DRUGS (6)
  1. CYMBALTA [Suspect]
     Indication: BACK PAIN
     Dosage: ORAL
     Route: 048
  2. PROZAC [Suspect]
     Indication: BACK PAIN
     Dosage: ORAL
     Route: 048
  3. LISINOPRIL [Concomitant]
  4. PROTONIX [Concomitant]
  5. IBANDRONATE SODIUM (IBANDRONATE SODIUM) [Concomitant]
  6. CELEBREX /UNK/(CELECOXIB) [Concomitant]

REACTIONS (1)
  - MIGRAINE [None]
